FAERS Safety Report 9201624 (Version 2)
Quarter: 2013Q2

REPORT INFORMATION
  Report Type: Spontaneous
  Country: US (occurrence: US)
  Receive Date: 20130401
  Receipt Date: 20130411
  Transmission Date: 20140414
  Serious: No
  Sender: FDA-Public Use
  Company Number: US-009507513-1303USA012637

PATIENT
  Age: 85 Year
  Sex: Male

DRUGS (5)
  1. DULERA [Suspect]
     Indication: ASTHMA
     Dosage: 2 PUFFS TWICE A DAY
     Route: 055
     Dates: end: 201303
  2. PROAIR (ALBUTEROL SULFATE) [Concomitant]
  3. VICODIN [Concomitant]
  4. FLOVENT [Concomitant]
  5. ALBUTEROL SULFATE [Concomitant]
     Route: 055

REACTIONS (4)
  - Throat tightness [Recovered/Resolved]
  - Heart rate decreased [Recovered/Resolved]
  - Oral discomfort [Recovered/Resolved]
  - Product quality issue [Unknown]
